FAERS Safety Report 5211877-4 (Version None)
Quarter: 2007Q1

REPORT INFORMATION
  Report Type: 
  Country: None (occurrence: None)
  Receive Date: 20070116
  Receipt Date: 20070105
  Transmission Date: 20070707
  Serious: Yes (Hospitalization)
  Sender: FDA-Public Use
  Company Number: HQWYE554105JAN07

PATIENT
  Age: 76 Year
  Sex: Female

DRUGS (5)
  1. PROPRANOLOL HYDROCHLORIDE [Suspect]
     Indication: HYPERTHYROIDISM
     Dosage: 40 MG 1 X PER 1 DAY ORAL
     Route: 048
     Dates: start: 20061107
  2. PAROXETINE HCL [Suspect]
     Dosage: 20 MG 1X PER 1 DAY ORAL
     Route: 048
  3. LOVENOX [Suspect]
     Dosage: 0.4 ML 1X PER 1 DAY SC
     Route: 058
     Dates: start: 20061109, end: 20061206
  4. NEO-MERCAZOLE TAB [Suspect]
     Dosage: 40 MG 1X PER 1 DAY ORAL
     Route: 048
     Dates: start: 20061107, end: 20061111
  5. DOGMATIL (SULPIRIDE) [Concomitant]

REACTIONS (4)
  - ANGIOPATHY [None]
  - NEUTROPENIA [None]
  - THYROID DISORDER [None]
  - THYROID NEOPLASM [None]
